FAERS Safety Report 24381260 (Version 1)
Quarter: 2024Q4

REPORT INFORMATION
  Report Type: Spontaneous
  Country: US (occurrence: US)
  Receive Date: 20241001
  Receipt Date: 20241001
  Transmission Date: 20250114
  Serious: Yes (Other)
  Sender: RANBAXY
  Company Number: US-SUN PHARMACEUTICAL INDUSTRIES LTD-2024R1-470447

PATIENT
  Sex: Male

DRUGS (2)
  1. DOCETAXEL [Suspect]
     Active Substance: DOCETAXEL
     Indication: Sarcomatoid carcinoma of the lung
     Dosage: UNK, 1 CYCLE
     Route: 065
  2. CISPLATIN [Suspect]
     Active Substance: CISPLATIN
     Indication: Sarcomatoid carcinoma of the lung
     Dosage: UNK, 1 CYCLE
     Route: 065

REACTIONS (5)
  - Diarrhoea [Unknown]
  - Hypoacusis [Unknown]
  - Nausea [Unknown]
  - Therapy non-responder [Unknown]
  - Vomiting [Unknown]
